FAERS Safety Report 26195661 (Version 1)
Quarter: 2025Q4

REPORT INFORMATION
  Report Type: Spontaneous
  Country: CA (occurrence: CA)
  Receive Date: 20251224
  Receipt Date: 20251224
  Transmission Date: 20260118
  Serious: Yes (Life-Threatening, Hospitalization, Disabling, Other)
  Sender: SANDOZ
  Company Number: CA-HALEON-2279941

PATIENT
  Age: 43 Year
  Sex: Female
  Weight: 70 kg

DRUGS (309)
  1. HYRIMOZ [Suspect]
     Active Substance: ADALIMUMAB-ADAZ
     Indication: Rheumatoid arthritis
     Dosage: 40 MG DOSAGE FORM: SOLUTION FOR INJECTION, ROA: SUBCUTANEOUS
  2. HYRIMOZ [Suspect]
     Active Substance: ADALIMUMAB-ADAZ
     Indication: Psoriatic arthropathy
     Dosage: 400 MG DOSAGE FORM: SOLUTION FOR INJECTION, ROA: SUBCUTANEOUS
  3. HYRIMOZ [Suspect]
     Active Substance: ADALIMUMAB-ADAZ
     Dosage: 40 MG DOSAGE FORM: SOLUTION FOR INJECTION, ROA: SUBCUTANEOUS
  4. HYRIMOZ [Suspect]
     Active Substance: ADALIMUMAB-ADAZ
     Dosage: UNK DOSAGE FORM: SOLUTION FOR INJECTION, ROA: SUBCUTANEOUS
  5. HYRIMOZ [Suspect]
     Active Substance: ADALIMUMAB-ADAZ
     Dosage: 40 MG, QD DOSAGE FORM: SOLUTION FOR INJECTION, ROA: SUBCUTANEOUS
  6. HYRIMOZ [Suspect]
     Active Substance: ADALIMUMAB-ADAZ
     Dosage: 4 MG DOSAGE FORM: SOLUTION FOR INJECTION, ROA: SUBCUTANEOUS
  7. HYRIMOZ [Suspect]
     Active Substance: ADALIMUMAB-ADAZ
     Dosage: 40 MG DOSAGE FORM: SOLUTION FOR INJECTION, ROA: SUBCUTANEOUS
  8. HYRIMOZ [Suspect]
     Active Substance: ADALIMUMAB-ADAZ
     Dosage: 40 MG DOSAGE FORM: SOLUTION FOR INJECTION, ROA: SUBCUTANEOUS
  9. HYRIMOZ [Suspect]
     Active Substance: ADALIMUMAB-ADAZ
     Dosage: UNK DOSAGE FORM: SOLUTION FOR INJECTION, ROA: SUBCONJUNCTIVAL
  10. HYRIMOZ [Suspect]
     Active Substance: ADALIMUMAB-ADAZ
     Dosage: UNK DOSAGE FORM: SOLUTION FOR INJECTION, ROA: SUBCUTANEOUS
  11. HYRIMOZ [Suspect]
     Active Substance: ADALIMUMAB-ADAZ
     Dosage: UNK DOSAGE FORM: SOLUTION FOR INJECTION, ROA: SUBCUTANEOUS
  12. HYRIMOZ [Suspect]
     Active Substance: ADALIMUMAB-ADAZ
     Dosage: UNK DOSAGE FORM: SOLUTION FOR INJECTION, ROA: SUBCUTANEOUS
  13. HYRIMOZ [Suspect]
     Active Substance: ADALIMUMAB-ADAZ
     Dosage: 4 MG
  14. ALENDRONATE SODIUM [Suspect]
     Active Substance: ALENDRONATE SODIUM
     Indication: Rheumatoid arthritis
     Dosage: UNK ROA: UNKNOWN
  15. ALENDRONATE SODIUM [Suspect]
     Active Substance: ALENDRONATE SODIUM
     Dosage: UNK ROA: UNKNOWN
  16. OXYCODONE [Suspect]
     Active Substance: OXYCODONE
     Indication: Product used for unknown indication
     Dosage: UNK DOSAGE FORM: NOT SPECIFIED, ROA: UNKNOWN
  17. MYCOPHENOLATE MOFETIL [Suspect]
     Active Substance: MYCOPHENOLATE MOFETIL
     Indication: Product used for unknown indication
     Dosage: UNK ROA: UNKNOWN CAPSULE
  18. RISEDRONATE SODIUM [Suspect]
     Active Substance: RISEDRONATE SODIUM
     Indication: Product used for unknown indication
     Dosage: 1 DOSAGE FORM DOSAGE FORM: NOT SPECIFIED, ROA: UNKNOWN
  19. DEXAMETHASONE [Suspect]
     Active Substance: DEXAMETHASONE
     Indication: Product used for unknown indication
     Dosage: UNK ROA: UNKNOWN
  20. LEFLUNOMIDE [Suspect]
     Active Substance: LEFLUNOMIDE
     Indication: Rheumatoid arthritis
     Dosage: UNK ROA: UNKNOWN
  21. LEFLUNOMIDE [Suspect]
     Active Substance: LEFLUNOMIDE
     Dosage: UNK ROA: UNKNOWN
  22. LEFLUNOMIDE [Suspect]
     Active Substance: LEFLUNOMIDE
     Dosage: 20 MG ROA: UNKNOWN
  23. LEFLUNOMIDE [Suspect]
     Active Substance: LEFLUNOMIDE
     Dosage: 20 MG, QD
  24. LEFLUNOMIDE [Suspect]
     Active Substance: LEFLUNOMIDE
     Dosage: UNK
  25. LEFLUNOMIDE [Suspect]
     Active Substance: LEFLUNOMIDE
     Dosage: UNK (TABLET)
  26. LEFLUNOMIDE [Suspect]
     Active Substance: LEFLUNOMIDE
     Dosage: UNK
  27. PREGABALIN [Suspect]
     Active Substance: PREGABALIN
     Indication: Product used for unknown indication
     Dosage: UNK ROA: UNKNOWN
  28. RITUXIMAB [Suspect]
     Active Substance: RITUXIMAB
     Indication: Rheumatoid arthritis
     Dosage: 2 DOSAGE FORM DOSAGE FORM: UNKNOWN, ROA: INTRAVENOUS (NOT OTHERWISE SPECIFIED)
  29. RITUXIMAB [Suspect]
     Active Substance: RITUXIMAB
     Dosage: UNK DOSAGE FORM: UNKNOWN, ROA: INTRAVENOUS (NOT OTHERWISE SPECIFIED)
  30. RITUXIMAB [Suspect]
     Active Substance: RITUXIMAB
     Dosage: UNK DOSAGE FORM: UNKNOWN, ROA: INTRAVENOUS (NOT OTHERWISE SPECIFIED)
  31. RITUXIMAB [Suspect]
     Active Substance: RITUXIMAB
     Dosage: UNK DOSAGE FORM: UNKNOWN, ROA: UNKNOWN
  32. RITUXIMAB [Suspect]
     Active Substance: RITUXIMAB
     Dosage: UNK DOSAGE FORM: UNKNOWN, ROA: INTRAVESICAL
  33. RITUXIMAB [Suspect]
     Active Substance: RITUXIMAB
     Dosage: UNK DOSAGE FORM: UNKNOWN, ROA: SUBCUTANEOUS
  34. HYDROCORTISONE [Suspect]
     Active Substance: HYDROCORTISONE
     Indication: Rheumatoid arthritis
     Dosage: UNK ROA: UNKNOWN
  35. PANTOPRAZOLE SODIUM [Suspect]
     Active Substance: PANTOPRAZOLE SODIUM
     Indication: Product used for unknown indication
     Dosage: UNK ROA: UNKNOWN
  36. VITAMIN C [Suspect]
     Active Substance: ASCORBIC ACID
     Indication: Rheumatoid arthritis
     Dosage: UNK DOSAGE FORM: NOT SPECIFIED, ROA: UNKNOWN
  37. INFLIXIMAB [Suspect]
     Active Substance: INFLIXIMAB
     Indication: Rheumatoid arthritis
     Dosage: UNK DOSAGE FORM: POWDER FOR CONCENTRATE FOR SOLUTION FOR INFUSION, ROA: UNKNOWN
  38. INFLIXIMAB [Suspect]
     Active Substance: INFLIXIMAB
     Dosage: 500 MG DOSAGE FORM: NOT SPECIFIED, ROA: INTRAVENOUS (NOT OTHERWISE SPECIFIED)
  39. INFLIXIMAB [Suspect]
     Active Substance: INFLIXIMAB
     Dosage: 500 MG
  40. ERELZI [Suspect]
     Active Substance: ETANERCEPT-SZZS
     Indication: Rheumatoid arthritis
     Dosage: 20 MG, QW DOSAGE FORM: UNKNOWN, ROA: SUBCUTANEOUS
  41. ERELZI [Suspect]
     Active Substance: ETANERCEPT-SZZS
     Indication: Psoriatic arthropathy
     Dosage: 50 MG, QW DOSAGE FORM: UNKNOWN, ROA: SUBCUTANEOUS
  42. ERELZI [Suspect]
     Active Substance: ETANERCEPT-SZZS
     Dosage: 50 MG DOSAGE FORM: UNKNOWN, ROA: UNKNOWN
  43. ERELZI [Suspect]
     Active Substance: ETANERCEPT-SZZS
     Dosage: 50 MG DOSAGE FORM: UNKNOWN, ROA: UNKNOWN
  44. ERELZI [Suspect]
     Active Substance: ETANERCEPT-SZZS
     Dosage: 20 MG DOSAGE FORM: UNKNOWN, ROA: UNKNOWN
  45. ERELZI [Suspect]
     Active Substance: ETANERCEPT-SZZS
     Dosage: 50 MG, QW DOSAGE FORM: NOT SPECIFIED, ROA: SUBCUTANEOUS
  46. ERELZI [Suspect]
     Active Substance: ETANERCEPT-SZZS
     Dosage: 20 MG DOSAGE FORM: UNKNOWN, ROA: SUBCUTANEOUS
  47. APREMILAST [Suspect]
     Active Substance: APREMILAST
     Indication: Product used for unknown indication
     Dosage: 3 MG
  48. APREMILAST [Suspect]
     Active Substance: APREMILAST
     Dosage: 3 MG DOSAGE FORM: UNKNOWN
  49. APREMILAST [Suspect]
     Active Substance: APREMILAST
     Dosage: 3 MG
  50. METHOTREXATE [Suspect]
     Active Substance: METHOTREXATE
     Indication: Rheumatoid arthritis
     Dosage: 225 MG DOSE FORM: UNKNOWN
  51. METHOTREXATE [Suspect]
     Active Substance: METHOTREXATE
     Dosage: 25 MG DOSE FORM: UNKNOWN; ROA: UNKNOWN
  52. METHOTREXATE [Suspect]
     Active Substance: METHOTREXATE
     Dosage: 20 MG DOSE FORM: UNKNOWN
  53. METHOTREXATE [Suspect]
     Active Substance: METHOTREXATE
     Dosage: 20 MG DOSE FORM: UNKNOWN; ROA: UNKNOWN
  54. METHOTREXATE [Suspect]
     Active Substance: METHOTREXATE
     Dosage: 25 MG DOSE FORM: UNKNOWN; ROA: INTRAARTICULAR
  55. METHOTREXATE [Suspect]
     Active Substance: METHOTREXATE
     Dosage: 25 MG DOSE FORM: UNKNOWN; ROA: INTRAARTICULAR
  56. METHOTREXATE [Suspect]
     Active Substance: METHOTREXATE
     Dosage: 25 MG DOSE FORM: UNKNOWN; ROA: UNKNOWN
  57. METHOTREXATE [Suspect]
     Active Substance: METHOTREXATE
     Dosage: UNK DOSE FORM: UNKNOWN
  58. METHOTREXATE [Suspect]
     Active Substance: METHOTREXATE
     Dosage: UNK DOSE FORM: UNKNOWN; ROA: UNKNOWN
  59. METHOTREXATE [Suspect]
     Active Substance: METHOTREXATE
     Dosage: UNK DOSE FORM: UNKNOWN; ROA: UNKNOWN
  60. METHOTREXATE [Suspect]
     Active Substance: METHOTREXATE
     Dosage: 25 MG, QD DOSE FORM: UNKNOWN
  61. METHOTREXATE [Suspect]
     Active Substance: METHOTREXATE
     Dosage: 20 MG, QD DOSE FORM: UNKNOWN
  62. METHOTREXATE [Suspect]
     Active Substance: METHOTREXATE
     Dosage: 25 MG DOSE FORM: UNKNOWN
  63. METHOTREXATE [Suspect]
     Active Substance: METHOTREXATE
     Dosage: UNK ROA: UNKNOWN
  64. METHOTREXATE [Suspect]
     Active Substance: METHOTREXATE
     Dosage: 25 MG DOSE FORM: UNKNOWN
  65. CELECOXIB [Suspect]
     Active Substance: CELECOXIB
     Indication: Arthritis
     Dosage: UNK ROA: UNKNOWN
  66. CELECOXIB [Suspect]
     Active Substance: CELECOXIB
     Dosage: 2 DOSAGE FORM, QD
  67. CELECOXIB [Suspect]
     Active Substance: CELECOXIB
     Dosage: 2 DOSAGE FORM, QD
  68. CELECOXIB [Suspect]
     Active Substance: CELECOXIB
     Dosage: UNK
  69. VOLTAREN [Suspect]
     Active Substance: DICLOFENAC SODIUM
     Indication: Inflammation
     Dosage: UNK ROA: UNKNOWN
  70. VOLTAREN [Suspect]
     Active Substance: DICLOFENAC SODIUM
     Indication: Rheumatoid arthritis
     Dosage: UNK ROA: UNKNOWN
  71. VOLTAREN [Suspect]
     Active Substance: DICLOFENAC SODIUM
     Indication: Product used for unknown indication
     Dosage: UNK ROA: UNKNOWN
  72. VOLTAREN [Suspect]
     Active Substance: DICLOFENAC SODIUM
     Indication: Osteoarthritis
     Dosage: UNK ROA: UNKNOWN
  73. VOLTAREN [Suspect]
     Active Substance: DICLOFENAC SODIUM
     Dosage: UNK ROA: UNKNOWN
  74. VOLTAREN [Suspect]
     Active Substance: DICLOFENAC SODIUM
     Dosage: 50 MG ROA: UNKNOWN
  75. COSENTYX [Suspect]
     Active Substance: SECUKINUMAB
     Indication: Rheumatoid arthritis
     Dosage: UNK ROA: UNKNOWN
  76. COSENTYX [Suspect]
     Active Substance: SECUKINUMAB
     Dosage: UNK ROA: INTRAVENOUS (NOT OTHERWISE SPECIFIED)
  77. CALTRATE [Suspect]
     Active Substance: CALCIUM CARBONATE
     Indication: Rheumatoid arthritis
     Dosage: UNK DOSAGE FORM: NOT SPECIFIED, ROA: UNKNOWN
  78. CALTRATE [Suspect]
     Active Substance: CALCIUM CARBONATE
     Indication: Psoriatic arthropathy
     Dosage: UNK DOSAGE FORM: UNKNOWN, ROA: UNKNOWN
  79. TUMS ULTRA [Suspect]
     Active Substance: CALCIUM CARBONATE
     Indication: Psoriatic arthropathy
     Dosage: UNK DOSAGE FORM: NOT SPECIFIED, ROUTE OF ADMINISTRATION: UNKNOWN (TUMS ULTRA PEPPERMINT )
  80. TUMS ULTRA [Suspect]
     Active Substance: CALCIUM CARBONATE
     Indication: Rheumatoid arthritis
     Dosage: UNK ROUTE OF ADMINISTRATION: UNKNOWN
  81. TUMS ULTRA [Suspect]
     Active Substance: CALCIUM CARBONATE
     Indication: Product used for unknown indication
     Dosage: ROUTE OF ADMINISTRATION: UNKNOWN
  82. TUMS ULTRA [Suspect]
     Active Substance: CALCIUM CARBONATE
     Dosage: ROUTE OF ADMINISTRATION: UNKNOWN
  83. CALCIUM GLUBIONATE [Suspect]
     Active Substance: CALCIUM GLUBIONATE
     Indication: Product used for unknown indication
     Dosage: 110 MG DOSAGE FORM: NOT SPECIFIED, ROA: UNKNOWN
  84. CALCIUM GLUBIONATE [Suspect]
     Active Substance: CALCIUM GLUBIONATE
     Dosage: UNK ROA: UNKNOWN
  85. CALCIUM GLUBIONATE [Suspect]
     Active Substance: CALCIUM GLUBIONATE
     Dosage: UNK ROA: UNKNOWN
  86. CALCIUM GLUBIONATE [Suspect]
     Active Substance: CALCIUM GLUBIONATE
     Dosage: UNK ROA: INTRACARDIAC
  87. CERTOLIZUMAB PEGOL [Suspect]
     Active Substance: CERTOLIZUMAB PEGOL
     Indication: Rheumatoid arthritis
     Dosage: UNK ROA: UNKNOWN
  88. CHLORHEXIDINE [Suspect]
     Active Substance: CHLORHEXIDINE
     Indication: Product used for unknown indication
     Dosage: UNK
  89. CHLORHEXIDINE [Suspect]
     Active Substance: CHLORHEXIDINE
     Dosage: UNK ROA: UNKNOWN
  90. CHLORHEXIDINE [Suspect]
     Active Substance: CHLORHEXIDINE
     Dosage: UNK ROA: UNKNOWN
  91. CHOLECALCIFEROL [Suspect]
     Active Substance: CHOLECALCIFEROL
     Indication: Product used for unknown indication
     Dosage: UNK DOSAGE FORM: NOT SPECIFIED, ROA: UNKNOWN
  92. CHLORHEXIDINE GLUCONATE [Suspect]
     Active Substance: CHLORHEXIDINE GLUCONATE
     Indication: Product used for unknown indication
     Dosage: UNK ROA: UNKNOWN
  93. CHLORHEXIDINE GLUCONATE [Suspect]
     Active Substance: CHLORHEXIDINE GLUCONATE
     Dosage: UNK ROA: UNKNOWN
  94. CHLORHEXIDINE GLUCONATE [Suspect]
     Active Substance: CHLORHEXIDINE GLUCONATE
     Dosage: UNK ROA: TOPICAL
  95. GOLIMUMAB [Suspect]
     Active Substance: GOLIMUMAB
     Indication: Prostatic specific antigen
     Dosage: UNK ROA: UNKNOWN
  96. GOLIMUMAB [Suspect]
     Active Substance: GOLIMUMAB
     Indication: Rheumatoid arthritis
     Dosage: UNK ROA: SUBCUTANEOUS
  97. ORENCIA [Suspect]
     Active Substance: ABATACEPT
     Indication: Rheumatoid arthritis
     Dosage: 1 DOSAGE FORM DOSAGE FORM: SOLUTION FOR INJECTION, ROA: INTRAVENOUS (NOT OTHERWISE SPECIFIED)
  98. ORENCIA [Suspect]
     Active Substance: ABATACEPT
     Dosage: 125 MG, QW DOSAGE FORM: SOLUTION FOR INJECTION, ROA: SUBCUTANEOUS
  99. ORENCIA [Suspect]
     Active Substance: ABATACEPT
     Dosage: UNK DOSAGE FORM: SOLUTION FOR INJECTION, ROA: SUBCUTANEOUS
  100. ORENCIA [Suspect]
     Active Substance: ABATACEPT
     Dosage: UNK DOSAGE FORM: SOLUTION FOR INJECTION, ROA: INTRAVENOUS (NOT OTHERWISE SPECIFIED)
  101. ORENCIA [Suspect]
     Active Substance: ABATACEPT
     Dosage: UNK DOSAGE FORM: SOLUTION FOR INJECTION, ROA: INTRACAVERNOUS
  102. ORENCIA [Suspect]
     Active Substance: ABATACEPT
     Dosage: UNK DOSAGE FORM: SOLUTION FOR INJECTION, ROA: UNKNOWN
  103. ORENCIA [Suspect]
     Active Substance: ABATACEPT
     Dosage: UNK DOSAGE FORM: SOLUTION FOR INJECTION, ROA: UNKNOWN
  104. ORENCIA [Suspect]
     Active Substance: ABATACEPT
     Dosage: 25 MG DOSAGE FORM: SOLUTION FOR INJECTION, ROA: SUBCUTANEOUS
  105. ORENCIA [Suspect]
     Active Substance: ABATACEPT
     Dosage: 17.857 MG, QD DOSAGE FORM: SOLUTION FOR INJECTION, ROA: SUBCUTANEOUS
  106. ORENCIA [Suspect]
     Active Substance: ABATACEPT
     Dosage: 125 MG, QW DOSAGE FORM: SOLUTION FOR INJECTION, ROA: INTRAVENOUS (NOT OTHERWISE SPECIFIED)
  107. ORENCIA [Suspect]
     Active Substance: ABATACEPT
     Dosage: 3 MG DOSAGE FORM: SOLUTION FOR INJECTION
  108. ORENCIA [Suspect]
     Active Substance: ABATACEPT
     Dosage: 5 MG DOSAGE FORM: SOLUTION FOR INJECTION, ROA: UNKNOWN
  109. ORENCIA [Suspect]
     Active Substance: ABATACEPT
     Dosage: UNK
  110. OXYCODONE TEREPHTHALATE [Suspect]
     Active Substance: OXYCODONE TEREPHTHALATE
     Indication: Product used for unknown indication
     Dosage: UNK DOSAGE FORM: NOT SPECIFIED, ROA: UNKNOWN
  111. PREDNISONE [Suspect]
     Active Substance: PREDNISONE
     Indication: Rheumatoid arthritis
     Dosage: UNK ROA: UNKNOWN
  112. PREDNISONE [Suspect]
     Active Substance: PREDNISONE
     Dosage: UNK ROA: UNKNOWN
  113. PREDNISONE [Suspect]
     Active Substance: PREDNISONE
     Dosage: UNK ROA: UNKNOWN
  114. PREDNISONE [Suspect]
     Active Substance: PREDNISONE
     Dosage: 5 MG
  115. PREDNISONE [Suspect]
     Active Substance: PREDNISONE
     Dosage: 7.5 MG
  116. PREDNISONE [Suspect]
     Active Substance: PREDNISONE
     Dosage: UNK
  117. PREDNISONE [Suspect]
     Active Substance: PREDNISONE
     Dosage: 1 MG ROA: UNKNOW
  118. PREDNISONE [Suspect]
     Active Substance: PREDNISONE
     Dosage: UNK
  119. PREDNISONE [Suspect]
     Active Substance: PREDNISONE
     Dosage: 5 MG DOSAGE FORM: NOT SPECIFIED, ROA: UNKNOWN
  120. PSEUDOEPHEDRINE [Suspect]
     Active Substance: PSEUDOEPHEDRINE
     Indication: Rheumatoid arthritis
     Dosage: UNK DOSAGE FORM: NOT SPECIFIED, ROA: UNKNOWN
  121. CETIRIZINE HYDROCHLORIDE [Suspect]
     Active Substance: CETIRIZINE HYDROCHLORIDE
     Indication: Rheumatoid arthritis
     Dosage: 10 MG DOSAGE FORM: NOT SPECIFIED, ROA: UNKNOWN
  122. CETIRIZINE HYDROCHLORIDE\PSEUDOEPHEDRINE HYDROCHLORIDE [Suspect]
     Active Substance: CETIRIZINE HYDROCHLORIDE\PSEUDOEPHEDRINE HYDROCHLORIDE
     Indication: Rheumatoid arthritis
     Dosage: UNK DOSAGE FORM: PROLONGED-RELEASE TABLET, ROA: UNKNOWN
  123. CETIRIZINE HYDROCHLORIDE\PSEUDOEPHEDRINE HYDROCHLORIDE [Suspect]
     Active Substance: CETIRIZINE HYDROCHLORIDE\PSEUDOEPHEDRINE HYDROCHLORIDE
     Indication: Off label use
     Dosage: 25 MG DOSAGE FORM: PROLONGED-RELEASE TABLET, ROA: UNKNOWN
  124. CETIRIZINE HYDROCHLORIDE\PSEUDOEPHEDRINE HYDROCHLORIDE [Suspect]
     Active Substance: CETIRIZINE HYDROCHLORIDE\PSEUDOEPHEDRINE HYDROCHLORIDE
     Indication: Rheumatoid arthritis
     Dosage: 10 MG DOSAGE FORM: TABLET (EXTENDED RELEASE), ROA: UNKNOWN
  125. CETIRIZINE HYDROCHLORIDE\PSEUDOEPHEDRINE HYDROCHLORIDE [Suspect]
     Active Substance: CETIRIZINE HYDROCHLORIDE\PSEUDOEPHEDRINE HYDROCHLORIDE
     Indication: Off label use
  126. SIMPONI [Suspect]
     Active Substance: GOLIMUMAB
     Indication: Rheumatoid arthritis
     Dosage: UNK DOSAGE FORM: SOLUTION FOR INJECTION, ROA: SUBCUTANEOUS
  127. SIMPONI [Suspect]
     Active Substance: GOLIMUMAB
     Dosage: UNK DOSAGE FORM: SOLUTION SUBCUTANEOUS, ROA: SUBCUTANEOUS
  128. SIMPONI [Suspect]
     Active Substance: GOLIMUMAB
     Dosage: UNK DOSAGE FORM: SOLUTION FOR INJECTION, ROA: SUBCUTANEOUS
  129. STELARA [Suspect]
     Active Substance: USTEKINUMAB
     Indication: Product used for unknown indication
     Dosage: UNK DOSAGE FORM: SOLUTION FOR INJECTION, ROA: SUBCUTANEOUS
  130. STELARA [Suspect]
     Active Substance: USTEKINUMAB
     Dosage: UNK DOSAGE FORM: SOLUTION FOR INJECTION, ROA: UNKNOWN
  131. STELARA [Suspect]
     Active Substance: USTEKINUMAB
     Dosage: UNK DOSAGE FORM: SOLUTION SUBCUTANEOUS, ROA: INTRAVENOUS (NOT OTHERWISE SPECIFIED)
  132. STELARA [Suspect]
     Active Substance: USTEKINUMAB
     Dosage: UNK DOSAGE FORM: SOLUTION SUBCUTANEOUS, ROA: INTRAVENOUS (NOT OTHERWISE SPECIFIED)
  133. USTEKINUMAB [Suspect]
     Active Substance: USTEKINUMAB
     Indication: Product used for unknown indication
     Dosage: 45 MG DOSAGE FORM: SOLUTION, ROA: UNKNOWN
  134. USTEKINUMAB [Suspect]
     Active Substance: USTEKINUMAB
     Dosage: 45 MG ROA: SUBCUTANEOUS
  135. USTEKINUMAB [Suspect]
     Active Substance: USTEKINUMAB
     Dosage: 45 MG ROA: SUBCUTANEOUS
  136. VITAMIN D3 [Suspect]
     Active Substance: CHOLECALCIFEROL
     Indication: Product used for unknown indication
     Dosage: UNK ROA: INTRACARDIAC
  137. VITAMIN D3 [Suspect]
     Active Substance: CHOLECALCIFEROL
     Dosage: UNK ROA: INTRACARDIAC
  138. XELJANZ [Suspect]
     Active Substance: TOFACITINIB CITRATE
     Indication: Rheumatoid arthritis
     Dosage: 5 MG DOSAGE FORM: NOT SPECIFIED, ROA: UNKNOWN
  139. XELJANZ [Suspect]
     Active Substance: TOFACITINIB CITRATE
     Dosage: 10 MG, QD ROA: UNKNOWN
  140. XELJANZ [Suspect]
     Active Substance: TOFACITINIB CITRATE
     Dosage: 10 MG, QD ROA: UNKNOWN
  141. XELJANZ [Suspect]
     Active Substance: TOFACITINIB CITRATE
     Dosage: 5 MG ROA: UNKNOWN
  142. XELJANZ [Suspect]
     Active Substance: TOFACITINIB CITRATE
     Dosage: UNK ROA: UNKNOWN
  143. ACETAMINOPHEN [Suspect]
     Active Substance: ACETAMINOPHEN
     Indication: Rheumatoid arthritis
     Dosage: UNK ROA: UNKNOWN
  144. ACETAMINOPHEN [Suspect]
     Active Substance: ACETAMINOPHEN
     Indication: Product used for unknown indication
     Dosage: UNK ROA: UNKNOWN
  145. ACETAMINOPHEN [Suspect]
     Active Substance: ACETAMINOPHEN
     Dosage: UNK ROA: UNKNOWN
  146. ACETAMINOPHEN [Suspect]
     Active Substance: ACETAMINOPHEN
     Dosage: UNK ROA: UNKNOWN
  147. ACETAMINOPHEN [Suspect]
     Active Substance: ACETAMINOPHEN
     Dosage: UNK ROA: UNKNOWN
  148. ACETAMINOPHEN [Suspect]
     Active Substance: ACETAMINOPHEN
     Dosage: UNK ROA: UNKNOWN
  149. ACETAMINOPHEN [Suspect]
     Active Substance: ACETAMINOPHEN
     Dosage: 20 MG DOSAGE FORM: NOT SPECIFIED
  150. ACETAMINOPHEN [Suspect]
     Active Substance: ACETAMINOPHEN
     Dosage: 20 MG
  151. ACTEMRA [Suspect]
     Active Substance: TOCILIZUMAB
     Indication: Rheumatoid arthritis
     Dosage: 752.8 MG, QMO DOSAGE FORM: SOLUTION FOR INFUSION, ROA: INTRAVENOUS (NOT OTHERWISE SPECIFIED)
  152. ACTEMRA [Suspect]
     Active Substance: TOCILIZUMAB
     Dosage: 728 MG, QMO DOSAGE FORM: SOLUTION FOR INFUSION, ROA: INTRAVENOUS (NOT OTHERWISE SPECIFIED)
  153. ACTEMRA [Suspect]
     Active Substance: TOCILIZUMAB
     Dosage: 752.8 MG, Q4W DOSAGE FORM: SOLUTION FOR INFUSION, ROA: INTRAVENOUS (NOT OTHERWISE SPECIFIED)
  154. ACTEMRA [Suspect]
     Active Substance: TOCILIZUMAB
     Dosage: UNK DOSAGE FORM: SOLUTION FOR INFUSION, ROA: INTRACARDIAC
  155. ACTEMRA [Suspect]
     Active Substance: TOCILIZUMAB
     Dosage: UNK DOSAGE FORM: SOLUTION FOR INFUSION, ROA: INTRAVENOUS (NOT OTHERWISE SPECIFIED)
  156. ACTEMRA [Suspect]
     Active Substance: TOCILIZUMAB
     Dosage: 20 MG DOSAGE FORM: SOLUTION FOR INFUSION
  157. ACTEMRA [Suspect]
     Active Substance: TOCILIZUMAB
     Dosage: UNK DOSAGE FORM: SOLUTION FOR INFUSION, ROA: SUBCUTANEOUS
  158. ACTEMRA [Suspect]
     Active Substance: TOCILIZUMAB
     Dosage: UNK DOSAGE FORM: SOLUTION FOR INFUSION, ROA: UNKNOWN
  159. ACTEMRA [Suspect]
     Active Substance: TOCILIZUMAB
     Dosage: UNK DOSAGE FORM: SOLUTION FOR INFUSION
  160. ACTEMRA [Suspect]
     Active Substance: TOCILIZUMAB
     Dosage: UNK DOSAGE FORM: SOLUTION FOR INFUSION, ROA: INTRAVENOUS (NOT OTHERWISE SPECIFIED)
  161. ACTEMRA [Suspect]
     Active Substance: TOCILIZUMAB
     Dosage: 3011 MG DOSAGE FORM: SOLUTION FOR INFUSION, ROA: INTRAVENOUS (NOT OTHERWISE SPECIFIED)
  162. ACTEMRA [Suspect]
     Active Substance: TOCILIZUMAB
     Dosage: 3011.2 MG DOSAGE FORM: SOLUTION FOR INFUSION, ROA: INTRAVENOUS (NOT OTHERWISE SPECIFIED)
  163. ACTEMRA [Suspect]
     Active Substance: TOCILIZUMAB
     Dosage: 728 MG, Q4W DOSAGE FORM: SOLUTION FOR INFUSION, ROA: INTRAVENOUS (NOT OTHERWISE SPECIFIED)
  164. ACTEMRA [Suspect]
     Active Substance: TOCILIZUMAB
     Dosage: 728 MG DOSAGE FORM: SOLUTION FOR INFUSION, ROA: UNKNOWN
  165. ACTEMRA [Suspect]
     Active Substance: TOCILIZUMAB
     Dosage: UNK DOSAGE FORM: SOLUTION FOR INFUSION, ROA: SUBCUTANEOUS
  166. ACTEMRA [Suspect]
     Active Substance: TOCILIZUMAB
     Dosage: 3011 MG DOSAGE FORM: SOLUTION FOR INFUSION, ROA: INTRAVENOUS (NOT OTHERWISE SPECIFIED)
  167. ACTEMRA [Suspect]
     Active Substance: TOCILIZUMAB
     Dosage: 728 MG DOSAGE FORM: SOLUTION FOR INFUSION, ROA: INTRAVENOUS (NOT OTHERWISE SPECIFIED)
  168. ACTEMRA [Suspect]
     Active Substance: TOCILIZUMAB
     Dosage: 752.8 MG DOSAGE FORM: SOLUTION FOR INFUSION, ROA: INTRAVENOUS (NOT OTHERWISE SPECIFIED)
  169. ACTEMRA [Suspect]
     Active Substance: TOCILIZUMAB
     Dosage: 2912 MG DOSAGE FORM: SOLUTION FOR INFUSION, ROA: INTRAVENOUS (NOT OTHERWISE SPECIFIED)
  170. ACTEMRA [Suspect]
     Active Substance: TOCILIZUMAB
     Dosage: 2912 MG, QW DOSAGE FORM: SOLUTION FOR INFUSION, ROA: INTRAVENOUS (NOT OTHERWISE SPECIFIED)
  171. ACTEMRA [Suspect]
     Active Substance: TOCILIZUMAB
     Dosage: UNK DOSAGE FORM: SOLUTION FOR INFUSION, ROA: TOPICAL
     Route: 061
  172. ACTEMRA [Suspect]
     Active Substance: TOCILIZUMAB
     Dosage: UNK
  173. CIMZIA [Suspect]
     Active Substance: CERTOLIZUMAB PEGOL
     Indication: Rheumatoid arthritis
     Dosage: UNK DOSAGE FORM: SOLUTION FOR INJECTION
  174. CIMZIA [Suspect]
     Active Substance: CERTOLIZUMAB PEGOL
     Indication: Psoriasis
     Dosage: 400 MG DOSAGE FORM: SOLUTION FOR INJECTION, ROA: SUBCUTANEOUS
  175. CIMZIA [Suspect]
     Active Substance: CERTOLIZUMAB PEGOL
     Dosage: 1 DOSAGE FORM DOSAGE FORM: SOLUTION FOR INJECTION, ROA: SUBCUTANEOUS
  176. CIMZIA [Suspect]
     Active Substance: CERTOLIZUMAB PEGOL
     Dosage: UNK DOSAGE FORM: SOLUTION FOR INJECTION; ROA: UNKNOWN
  177. CIMZIA [Suspect]
     Active Substance: CERTOLIZUMAB PEGOL
     Dosage: UNK DOSAGE FORM: SOLUTION FOR INJECTION; ROA: UNKNOWN
  178. CORTISONE [Suspect]
     Active Substance: CORTISONE
     Indication: Product used for unknown indication
     Dosage: UNK DOSAGE FORM: UNKNOWN, ROA: UNKNOWN
  179. CORTISONE [Suspect]
     Active Substance: CORTISONE
     Indication: Rheumatoid arthritis
     Dosage: UNK DOSAGE FORM: UNKNOWN, ROA: UNKNOWN
  180. CORTISONE [Suspect]
     Active Substance: CORTISONE
     Dosage: UNK DOSAGE FORM: NOT SPECIFIED, ROA: CUTANEOUS
  181. FOSAMAX [Suspect]
     Active Substance: ALENDRONATE SODIUM
     Indication: Rheumatoid arthritis
     Dosage: UNK ROA: UNKNOWN
  182. FOSAMAX [Suspect]
     Active Substance: ALENDRONATE SODIUM
     Dosage: UNK ROA: UNKNOWN
  183. FOSAMAX [Suspect]
     Active Substance: ALENDRONATE SODIUM
     Dosage: UNK ROA: SUBCUTANEOUS
  184. HYDROXYCHLOROQUINE SULFATE [Suspect]
     Active Substance: HYDROXYCHLOROQUINE SULFATE
     Indication: Rheumatoid arthritis
     Dosage: UNK ROA: SUBCUTANEOUS
  185. HYDROXYCHLOROQUINE SULFATE [Suspect]
     Active Substance: HYDROXYCHLOROQUINE SULFATE
     Dosage: 400 MG, QD ROA: UNKNOWN
  186. HYDROXYCHLOROQUINE SULFATE [Suspect]
     Active Substance: HYDROXYCHLOROQUINE SULFATE
     Dosage: 4 DOSAGE FORM ROA: UNKNOWN
  187. HYDROXYCHLOROQUINE SULFATE [Suspect]
     Active Substance: HYDROXYCHLOROQUINE SULFATE
     Dosage: 400 MG, QD
  188. HYDROXYCHLOROQUINE SULFATE [Suspect]
     Active Substance: HYDROXYCHLOROQUINE SULFATE
     Dosage: 400 MG, QD
  189. HYDROXYCHLOROQUINE SULFATE [Suspect]
     Active Substance: HYDROXYCHLOROQUINE SULFATE
     Dosage: 400 MG ROA: UNKNOWN
  190. HYDROXYCHLOROQUINE SULFATE [Suspect]
     Active Substance: HYDROXYCHLOROQUINE SULFATE
     Dosage: 400 MG ROA: UNKNOWN
  191. NAPROXEN SODIUM [Suspect]
     Active Substance: NAPROXEN SODIUM
     Indication: Rheumatoid arthritis
     Dosage: 500 MG DOSAGE FORM: NOT SPECIFIED, ROA: UNKNOWN
  192. NAPROXEN SODIUM [Suspect]
     Active Substance: NAPROXEN SODIUM
     Indication: Psoriatic arthropathy
     Dosage: 1000 MG, QD ROA: UNKNOWN
  193. NAPROXEN SODIUM [Suspect]
     Active Substance: NAPROXEN SODIUM
     Dosage: UNK ROA: UNKNOWN
  194. NAPROXEN SODIUM [Suspect]
     Active Substance: NAPROXEN SODIUM
     Dosage: 500 MG ROA: UNKNOWN
  195. PLAQUENIL [Suspect]
     Active Substance: HYDROXYCHLOROQUINE SULFATE
     Indication: Rheumatoid arthritis
     Dosage: 40 MG, QD ROA: UNKNOWN
  196. PLAQUENIL [Suspect]
     Active Substance: HYDROXYCHLOROQUINE SULFATE
     Dosage: 40 MG ROA: UNKNOWN
  197. PLAQUENIL [Suspect]
     Active Substance: HYDROXYCHLOROQUINE SULFATE
     Dosage: 400 MG, QD ROA: UNKNOWN
  198. PLAQUENIL [Suspect]
     Active Substance: HYDROXYCHLOROQUINE SULFATE
     Dosage: UNK ROA: UNKNOWN
  199. PLAQUENIL [Suspect]
     Active Substance: HYDROXYCHLOROQUINE SULFATE
     Dosage: UNK
  200. PLAQUENIL [Suspect]
     Active Substance: HYDROXYCHLOROQUINE SULFATE
     Dosage: UNK
  201. PLAQUENIL [Suspect]
     Active Substance: HYDROXYCHLOROQUINE SULFATE
     Dosage: 400 MG, QD ROA: UNKNOWN
  202. PLAQUENIL [Suspect]
     Active Substance: HYDROXYCHLOROQUINE SULFATE
     Dosage: 40 MG, QD
  203. PLAQUENIL [Suspect]
     Active Substance: HYDROXYCHLOROQUINE SULFATE
     Dosage: 1 DOSAGE FORM, QD ROA: UNKNOWN
  204. PLAQUENIL [Suspect]
     Active Substance: HYDROXYCHLOROQUINE SULFATE
     Dosage: 400 MG, QD
  205. SULFASALAZINE [Suspect]
     Active Substance: SULFASALAZINE
     Indication: Rheumatoid arthritis
     Dosage: 1 G DOSAGE FORM: GASTRO-RESISTANT TABLET, ROA: UNKNOWN
  206. SULFASALAZINE [Suspect]
     Active Substance: SULFASALAZINE
     Dosage: 2 G, QD DOSAGE FORM: GASTRO-RESISTANT TABLET
  207. SULFASALAZINE [Suspect]
     Active Substance: SULFASALAZINE
     Dosage: 1 DOSAGE FORM DOSAGE FORM: GASTRORESISTANT TABLET
  208. SULFASALAZINE [Suspect]
     Active Substance: SULFASALAZINE
     Dosage: 1000 MG DOSAGE FORM: GASTRO-RESISTANT TABLET
  209. SULFASALAZINE [Suspect]
     Active Substance: SULFASALAZINE
     Dosage: 300 MG, QD DOSAGE FORM: GASTRORESISTANT TABLET, ROA: UNKNOWN
  210. SULFASALAZINE [Suspect]
     Active Substance: SULFASALAZINE
     Dosage: UNK DOSAGE FORM: GASTRO-RESISTANT TABLET
  211. SULFASALAZINE [Suspect]
     Active Substance: SULFASALAZINE
     Dosage: 500 MG DOSAGE FORM: GASTRO-RESISTANT TABLET
  212. SULFASALAZINE [Suspect]
     Active Substance: SULFASALAZINE
     Dosage: 500 MG DOSAGE FORM: GASTRO-RESISTANT TABLET
  213. SULFASALAZINE [Suspect]
     Active Substance: SULFASALAZINE
     Dosage: UNK DOSAGE FORM: GASTRO-RESISTANT TABLET
  214. SULFASALAZINE [Suspect]
     Active Substance: SULFASALAZINE
     Dosage: 1 G, QD DOSAGE FORM: GASTRO-RESISTANT TABLET, ROA: UNKNOWN
  215. SULFASALAZINE [Suspect]
     Active Substance: SULFASALAZINE
     Dosage: 1 DOSAGE FORM DOSAGE FORM: GASTRORESISTANT TABLET
  216. SULFASALAZINE [Suspect]
     Active Substance: SULFASALAZINE
     Dosage: 500 MG DOSAGE FORM: GASTRO-RESISTANT TABLET
  217. SULFASALAZINE [Suspect]
     Active Substance: SULFASALAZINE
     Dosage: 2000 MG DOSAGE FORM: GASTRO-RESISTANT TABLET
  218. SULFASALAZINE [Suspect]
     Active Substance: SULFASALAZINE
     Dosage: 1 G DOSAGE FORM: GASTRO-RESISTANT TABLET, ROA; UNKNOWN
  219. SULFASALAZINE [Suspect]
     Active Substance: SULFASALAZINE
     Dosage: UNK DOSAGE FORM: GASTRO-RESISTANT TABLET, ROA; UNKNOWN
  220. SULFASALAZINE [Suspect]
     Active Substance: SULFASALAZINE
     Dosage: DOSAGE FORM: GASTRO-RESISTANT TABLET, ROA; UNKNOWN
  221. SULFASALAZINE [Suspect]
     Active Substance: SULFASALAZINE
     Dosage: 1000 MG DOSAGE FORM: GASTRO-RESISTANT TABLET
  222. SULFASALAZINE [Suspect]
     Active Substance: SULFASALAZINE
     Dosage: 1 G, QD DOSAGE FORM: GASTRO-RESISTANT TABLET; ROA: SUBCUTANEOUS
  223. SULFASALAZINE [Suspect]
     Active Substance: SULFASALAZINE
     Dosage: 500 MG DOSAGE FORM: GASTRO-RESISTANT TABLET; ROA: UNKNOWN
  224. SULFASALAZINE [Suspect]
     Active Substance: SULFASALAZINE
     Dosage: 1 GDOSAGE FORM: GASTRO-RESISTANT TABLET
  225. SULFASALAZINE [Suspect]
     Active Substance: SULFASALAZINE
     Dosage: UNK DOSAGE FORM: GASTRO-RESISTANT TABLET
  226. SULFASALAZINE [Suspect]
     Active Substance: SULFASALAZINE
     Dosage: 1 G, QD DOSAGE FORM: GASTRO-RESISTANT TABLET
  227. SULFASALAZINE [Suspect]
     Active Substance: SULFASALAZINE
     Indication: Rheumatoid arthritis
     Dosage: 1000 MG DOSAGE FORM: NOT SPECIFIED
  228. TOFACITINIB CITRATE [Suspect]
     Active Substance: TOFACITINIB CITRATE
     Indication: Rheumatoid arthritis
     Dosage: UNK ROA: UNKNOWN
  229. TOFACITINIB CITRATE [Suspect]
     Active Substance: TOFACITINIB CITRATE
     Dosage: 10 MG, QD ROA: UNKNOWN
  230. TOFACITINIB CITRATE [Suspect]
     Active Substance: TOFACITINIB CITRATE
     Dosage: 5 MG, QD
  231. TOFACITINIB CITRATE [Suspect]
     Active Substance: TOFACITINIB CITRATE
     Dosage: 5 MG, QD ROA: UNKNOWN
  232. TOFACITINIB CITRATE [Suspect]
     Active Substance: TOFACITINIB CITRATE
     Dosage: 5 MG, QW
  233. TOFACITINIB CITRATE [Suspect]
     Active Substance: TOFACITINIB CITRATE
     Dosage: 5 MG ROA: UNKNOWN
  234. TOFACITINIB CITRATE [Suspect]
     Active Substance: TOFACITINIB CITRATE
     Dosage: 5 MG ROA: UNKNOWN
  235. BENZOCAINE (BENZOCAINE) [Suspect]
     Active Substance: BENZOCAINE
     Indication: Product used for unknown indication
     Dosage: UNK DOSAGE FORM: NOT SPECIFIED, ROA: UNKNOWN
  236. CETRIMONIUM BROMIDE [Suspect]
     Active Substance: CETRIMONIUM BROMIDE
     Indication: Product used for unknown indication
     Dosage: UNK ROA: UNKNOWN
  237. CETRIMONIUM BROMIDE [Suspect]
     Active Substance: CETRIMONIUM BROMIDE
     Dosage: UNK ROA: TOPICAL
     Route: 061
  238. CHLORAPREP [Suspect]
     Active Substance: CHLORHEXIDINE GLUCONATE\ISOPROPYL ALCOHOL
     Indication: Product used for unknown indication
     Dosage: UNK DOSAGE FORM: SOLUTION, ROA: UNKNOWN
  239. CHLORAPREP [Suspect]
     Active Substance: CHLORHEXIDINE GLUCONATE\ISOPROPYL ALCOHOL
     Dosage: UNK DOSAGE FORM: SOLUTION, ROA: TOPICAL
     Route: 061
  240. DOXYCYCLINE [Suspect]
     Active Substance: DOXYCYCLINE
     Indication: Product used for unknown indication
     Dosage: UNK DOSAGE FORM: NOT SPECIFIED, ROA: UNKNOWN
  241. ELBASVIR [Suspect]
     Active Substance: ELBASVIR
     Indication: Rheumatoid arthritis
     Dosage: UNK ROA: UNKNOWN
  242. FOLIC ACID [Suspect]
     Active Substance: FOLIC ACID
     Indication: Rheumatoid arthritis
     Dosage: 500 MG
  243. FOLIC ACID [Suspect]
     Active Substance: FOLIC ACID
     Dosage: UNK ROA: UNKNOWN
  244. FOLIC ACID [Suspect]
     Active Substance: FOLIC ACID
     Dosage: 25 MG
  245. FOLIC ACID [Suspect]
     Active Substance: FOLIC ACID
     Dosage: 10 MG ROA: UNKNOWN
  246. FOLIC ACID [Suspect]
     Active Substance: FOLIC ACID
     Dosage: 1 MG ROA: UNKNOWN
  247. FOLIC ACID [Suspect]
     Active Substance: FOLIC ACID
     Dosage: 15 MG ROA: UNKNOWN
  248. FOLIC ACID [Suspect]
     Active Substance: FOLIC ACID
     Dosage: UNK ROA: UNKNOWN
  249. FOLIC ACID [Suspect]
     Active Substance: FOLIC ACID
     Dosage: 1 MG ROA: SUBCUTANEOUS
  250. FOLIC ACID [Suspect]
     Active Substance: FOLIC ACID
     Dosage: 1 MG ROA: UNKNOWN
  251. FOLIC ACID [Suspect]
     Active Substance: FOLIC ACID
     Dosage: 5 MG ROA: UNKNOWN
  252. FOLIC ACID [Suspect]
     Active Substance: FOLIC ACID
     Dosage: 0.5 MG
  253. HYDROCORTISONE ACETATE [Suspect]
     Active Substance: HYDROCORTISONE ACETATE
     Indication: Rheumatoid arthritis
     Dosage: UNK DOSAGE FORM: OINTMENT, ROA: UNKNOWN
  254. HYDROCORTISONE ACETATE [Suspect]
     Active Substance: HYDROCORTISONE ACETATE
     Dosage: UNK DOSAGE FORM: OINTMENT, ROA: CUTANEOUS
  255. HYDROCORTISONE ACETATE [Suspect]
     Active Substance: HYDROCORTISONE ACETATE
     Dosage: UNK DOSAGE FORM: OINTMENT, ROA: UNKNOWN
  256. HYDROCORTISONE ACETATE [Suspect]
     Active Substance: HYDROCORTISONE ACETATE
     Dosage: UNK DOSAGE FORM: OINTMENT, ROA: UNKNOWN
  257. ISOPROPYL ALCOHOL [Suspect]
     Active Substance: ISOPROPYL ALCOHOL
     Indication: Product used for unknown indication
     Dosage: UNK ROA: UNKNOWN
  258. ISOPROPYL ALCOHOL [Suspect]
     Active Substance: ISOPROPYL ALCOHOL
     Dosage: UNK ROA: UNKNOWN
  259. ISOPROPYL ALCOHOL [Suspect]
     Active Substance: ISOPROPYL ALCOHOL
     Dosage: UNK DOSAGE FORM: LIQUID TOPICAL, ROA: TOPICAL
     Route: 061
  260. ISOPROPYL ALCOHOL [Suspect]
     Active Substance: ISOPROPYL ALCOHOL
     Dosage: UNK ROA: UNKNOWN
  261. PERIOGARD [Suspect]
     Active Substance: CHLORHEXIDINE GLUCONATE
     Indication: Product used for unknown indication
     Dosage: UNK ROA: BUCCAL
  262. PERIOGARD [Suspect]
     Active Substance: CHLORHEXIDINE GLUCONATE
     Dosage: UNK ROA: UNKNOWN
  263. SULFAMETHOXAZOLE\TRIMETHOPRIM [Suspect]
     Active Substance: SULFAMETHOXAZOLE\TRIMETHOPRIM
     Indication: Product used for unknown indication
     Dosage: UNK DOSAGE FORM: NOT SPECIFIED, ROA: UNKNOWN
  264. TOCILIZUMAB [Suspect]
     Active Substance: TOCILIZUMAB
     Indication: Rheumatoid arthritis
     Dosage: UNK ROA: UNKNOWN
  265. HYALURONIDASE (HUMAN RECOMBINANT) [Suspect]
     Active Substance: HYALURONIDASE (HUMAN RECOMBINANT)
     Indication: Rheumatoid arthritis
     Dosage: UNK ROA: UNKNOWN
  266. CETIRIZINE [Suspect]
     Active Substance: CETIRIZINE HYDROCHLORIDE
     Indication: Rheumatoid arthritis
     Dosage: 25 MG
  267. CETIRIZINE [Suspect]
     Active Substance: CETIRIZINE HYDROCHLORIDE
     Dosage: 10 MG ROA: UNKNOWN
  268. CETIRIZINE [Suspect]
     Active Substance: CETIRIZINE HYDROCHLORIDE
     Dosage: 10 MG ROA: UNKNOWN
  269. CETIRIZINE [Suspect]
     Active Substance: CETIRIZINE HYDROCHLORIDE
     Dosage: UNK
  270. CETIRIZINE HYDROCHLORIDE [Suspect]
     Active Substance: CETIRIZINE HYDROCHLORIDE
     Indication: Rheumatoid arthritis
     Dosage: 10 MG, QD
  271. CETIRIZINE HYDROCHLORIDE [Suspect]
     Active Substance: CETIRIZINE HYDROCHLORIDE
     Dosage: UNK
  272. CETIRIZINE HYDROCHLORIDE [Suspect]
     Active Substance: CETIRIZINE HYDROCHLORIDE
     Dosage: 10 MG
  273. CETIRIZINE HYDROCHLORIDE [Suspect]
     Active Substance: CETIRIZINE HYDROCHLORIDE
     Dosage: UNK ROA: UNKNOWN
  274. CETIRIZINE HYDROCHLORIDE [Suspect]
     Active Substance: CETIRIZINE HYDROCHLORIDE
     Dosage: 25 MG ROA: UNKNOWN
  275. CORTISONE ACETATE [Suspect]
     Active Substance: CORTISONE ACETATE
     Indication: Rheumatoid arthritis
     Dosage: 25 MG DOSAGE FORM: OINTMENT, ROA: UNKNOWN
  276. CORTISONE ACETATE [Suspect]
     Active Substance: CORTISONE ACETATE
     Dosage: 25 MG DOSAGE FORM: OINTMENT, ROA: UNKNOWN
  277. CORTISONE ACETATE [Suspect]
     Active Substance: CORTISONE ACETATE
     Dosage: 25 MG DOSAGE FORM: OINTMENT
  278. CORTISONE ACETATE [Suspect]
     Active Substance: CORTISONE ACETATE
     Dosage: 25 MG DOSAGE FORM: OINTMENT, ROA: TOPICAL
     Route: 061
  279. CORTISONE ACETATE [Suspect]
     Active Substance: CORTISONE ACETATE
     Dosage: UNK DOSAGE FORM: OINTMENT, ROA: TOPICAL
     Route: 061
  280. CORTISONE ACETATE [Suspect]
     Active Substance: CORTISONE ACETATE
     Dosage: UNK DOSAGE FORM: OINTMENT
  281. CORTISONE ACETATE [Suspect]
     Active Substance: CORTISONE ACETATE
     Dosage: UNK DOSAGE FORM: OINTMENT, ROA: UNKNOWN
  282. DESOXIMETASONE [Suspect]
     Active Substance: DESOXIMETASONE
     Indication: Rheumatoid arthritis
     Dosage: UNK DOSAGE FORM: CREAM, ROA: UNKNOWN
  283. DESOXIMETASONE [Suspect]
     Active Substance: DESOXIMETASONE
     Dosage: UNK DOSAGE FORM: CREAM,
  284. DESOXIMETASONE [Suspect]
     Active Substance: DESOXIMETASONE
     Dosage: 25 MG DOSAGE FORM: CREAM, ROA: TOPICAL
     Route: 061
  285. DESOXIMETASONE [Suspect]
     Active Substance: DESOXIMETASONE
     Dosage: 25 MG DOSAGE FORM: CREAM, ROA: UNKNOWN
  286. DESOXIMETASONE [Suspect]
     Active Substance: DESOXIMETASONE
     Dosage: UNK DOSAGE FORM: CREAM, ROA: UNKNOWN
  287. DESOXIMETASONE [Suspect]
     Active Substance: DESOXIMETASONE
     Dosage: UNK DOSAGE FORM: NOT SPECIFIED, ROA: SUBCUTANEOUS
  288. DESOXIMETASONE [Suspect]
     Active Substance: DESOXIMETASONE
     Dosage: UNK DOSAGE FORM: NOT SPECIFIED, ROA: SUBCUTANEOUS
  289. FLUMETHASONE PIVALATE [Suspect]
     Active Substance: FLUMETHASONE PIVALATE
     Indication: Product used for unknown indication
     Dosage: UNK ROA: UNKNOWN
  290. FLUMETHASONE PIVALATE [Suspect]
     Active Substance: FLUMETHASONE PIVALATE
     Indication: Rheumatoid arthritis
     Dosage: UNK ROA: UNKNOWN
  291. FLUMETHASONE PIVALATE [Suspect]
     Active Substance: FLUMETHASONE PIVALATE
     Dosage: UNK ROA: UNKNOWN
  292. FLUMETHASONE PIVALATE [Suspect]
     Active Substance: FLUMETHASONE PIVALATE
     Dosage: UNK ROA: SUBCUTANEOUS
  293. HYDROXYCHLOROQUINE [Suspect]
     Active Substance: HYDROXYCHLOROQUINE
     Indication: Rheumatoid arthritis
     Dosage: 40 MG ROA: UNKNOWN
  294. HYDROXYCHLOROQUINE [Suspect]
     Active Substance: HYDROXYCHLOROQUINE
     Dosage: 4 DOSAGE FORM ROA: UNKNOWN
  295. HYDROXYCHLOROQUINE [Suspect]
     Active Substance: HYDROXYCHLOROQUINE
     Dosage: UNK ROA: UNKNOWN
  296. HYDROXYCHLOROQUINE [Suspect]
     Active Substance: HYDROXYCHLOROQUINE
     Dosage: UNK
  297. HYDROXYCHLOROQUINE [Suspect]
     Active Substance: HYDROXYCHLOROQUINE
     Dosage: 400 MG, QD
  298. HYDROXYCHLOROQUINE [Suspect]
     Active Substance: HYDROXYCHLOROQUINE
     Dosage: 400 MG, QD ROA: UNKNOWN
  299. HYDROXYCHLOROQUINE [Suspect]
     Active Substance: HYDROXYCHLOROQUINE
     Dosage: 400 MG ROA: UNKNOWN
  300. PHTHALYLSULFATHIAZOLE [Suspect]
     Active Substance: PHTHALYLSULFATHIAZOLE
     Indication: Rheumatoid arthritis
     Dosage: UNK ROA: INTRAVENOUS (NOT OTHERWISE SPECIFIED)
  301. PHTHALYLSULFATHIAZOLE [Suspect]
     Active Substance: PHTHALYLSULFATHIAZOLE
     Dosage: 50 MG
  302. PHTHALYLSULFATHIAZOLE [Suspect]
     Active Substance: PHTHALYLSULFATHIAZOLE
     Dosage: UNK ROA: SUBCUTANEOUS
  303. PHTHALYLSULFATHIAZOLE [Suspect]
     Active Substance: PHTHALYLSULFATHIAZOLE
     Dosage: UNK ROA: SUBCUTANEOUS
  304. PHTHALYLSULFATHIAZOLE [Suspect]
     Active Substance: PHTHALYLSULFATHIAZOLE
     Dosage: UNK ROA: UNKNOWN
  305. PSEUDOEPHEDRINE HYDROCHLORIDE [Suspect]
     Active Substance: PSEUDOEPHEDRINE HYDROCHLORIDE
     Indication: Rheumatoid arthritis
     Dosage: 1 MG ROA: UNKNOWN
  306. PSEUDOEPHEDRINE HYDROCHLORIDE [Suspect]
     Active Substance: PSEUDOEPHEDRINE HYDROCHLORIDE
     Dosage: UNK ROA: UNKNOWN
  307. PSEUDOEPHEDRINE HYDROCHLORIDE [Suspect]
     Active Substance: PSEUDOEPHEDRINE HYDROCHLORIDE
     Dosage: UNK ROA: UNKNOWN
  308. PSEUDOEPHEDRINE HYDROCHLORIDE [Suspect]
     Active Substance: PSEUDOEPHEDRINE HYDROCHLORIDE
     Dosage: 25 MG ROA: UNKNOWN
  309. PSEUDOEPHEDRINE HYDROCHLORIDE [Suspect]
     Active Substance: PSEUDOEPHEDRINE HYDROCHLORIDE
     Dosage: 10 MG ROA: UNKNOWN

REACTIONS (6)
  - Pruritus [Not Recovered/Not Resolved]
  - Mobility decreased [Not Recovered/Not Resolved]
  - Drug ineffective [Not Recovered/Not Resolved]
  - Therapeutic product effect decreased [Not Recovered/Not Resolved]
  - Therapy non-responder [Not Recovered/Not Resolved]
  - Intentional product use issue [Not Recovered/Not Resolved]
